FAERS Safety Report 12781576 (Version 1)
Quarter: 2016Q3

REPORT INFORMATION
  Report Type: Spontaneous
  Country: US (occurrence: US)
  Receive Date: 20160926
  Receipt Date: 20160926
  Transmission Date: 20161109
  Serious: No
  Sender: FDA-Public Use
  Company Number: US-ALLERGAN-1648237

PATIENT
  Age: 77 Year
  Sex: Female

DRUGS (2)
  1. CARAFATE [Suspect]
     Active Substance: SUCRALFATE
     Indication: GASTROENTERITIS VIRAL
     Dosage: 1 G/ 10 ML, 4 TIMES DAILY AND ONCE AT NIGHT
     Route: 048
     Dates: start: 20160125
  2. CARAFATE [Suspect]
     Active Substance: SUCRALFATE
     Indication: ABDOMINAL PAIN

REACTIONS (10)
  - Constipation [Not Recovered/Not Resolved]
  - Fatigue [Not Recovered/Not Resolved]
  - Abnormal sleep-related event [Recovered/Resolved]
  - Flatulence [Not Recovered/Not Resolved]
  - Middle insomnia [None]
  - Intentional product use issue [Not Recovered/Not Resolved]
  - Skin odour abnormal [Recovered/Resolved]
  - Abdominal pain upper [Not Recovered/Not Resolved]
  - Nightmare [Not Recovered/Not Resolved]
  - Product use issue [Not Recovered/Not Resolved]

NARRATIVE: CASE EVENT DATE: 20160125
